FAERS Safety Report 7930881-6 (Version None)
Quarter: 2011Q4

REPORT INFORMATION
  Report Type: 
  Country: None (occurrence: None)
  Receive Date: 20111121
  Receipt Date: 20111115
  Transmission Date: 20120403
  Serious: Yes (Other)
  Sender: FDA-Public Use
  Company Number: US-AMGEN-USASP2011060216

PATIENT
  Age: 55 Year
  Sex: Female

DRUGS (1)
  1. ENBREL [Suspect]
     Indication: RHEUMATOID ARTHRITIS
     Dosage: 50 MG, QWK
     Dates: start: 20110915

REACTIONS (5)
  - MEMORY IMPAIRMENT [None]
  - TENDERNESS [None]
  - OEDEMA PERIPHERAL [None]
  - PARAESTHESIA [None]
  - WEIGHT INCREASED [None]
